FAERS Safety Report 12997397 (Version 1)
Quarter: 2016Q4

REPORT INFORMATION
  Report Type: Spontaneous
  Country: US (occurrence: US)
  Receive Date: 20161202
  Receipt Date: 20161202
  Transmission Date: 20170207
  Serious: Yes (Other)
  Sender: FDA-Public Use
  Company Number: None

PATIENT
  Age: 48 Year
  Sex: Female
  Weight: 72.58 kg

DRUGS (6)
  1. NERVE BLOCKS [Concomitant]
  2. LYRICA [Suspect]
     Active Substance: PREGABALIN
     Indication: NEURITIS
     Route: 048
     Dates: start: 20150529, end: 20150604
  3. MELOXICAM. [Concomitant]
     Active Substance: MELOXICAM
  4. HYDROXYCHLOROQUINE [Concomitant]
     Active Substance: HYDROXYCHLOROQUINE
  5. LYRICA [Suspect]
     Active Substance: PREGABALIN
     Indication: PLANTAR FASCIITIS
     Route: 048
     Dates: start: 20150529, end: 20150604
  6. CRYOGENIC NEURO-ABLATION [Concomitant]

REACTIONS (9)
  - Flushing [None]
  - Immune thrombocytopenic purpura [None]
  - Malaise [None]
  - Pain in extremity [None]
  - Fatigue [None]
  - Sjogren^s syndrome [None]
  - Gait disturbance [None]
  - Contusion [None]
  - Systemic lupus erythematosus [None]

NARRATIVE: CASE EVENT DATE: 20150715
